FAERS Safety Report 8252381-9 (Version None)
Quarter: 2012Q2

REPORT INFORMATION
  Report Type: 
  Country: None (occurrence: None)
  Receive Date: 20120402
  Receipt Date: 20110602
  Transmission Date: 20120825
  Serious: No
  Sender: FDA-Public Use
  Company Number: US-ABBOTT-11P-163-0804637-00

PATIENT
  Sex: Male
  Weight: 78.636 kg

DRUGS (5)
  1. TESTOSTERONE [Suspect]
     Indication: BLOOD TESTOSTERONE DECREASED
     Dosage: DAILY DOSE: 5 GRAM(S)
     Route: 062
     Dates: start: 20100301
  2. PRAVASTATIN [Concomitant]
     Indication: BLOOD CHOLESTEROL INCREASED
     Dosage: DAILY DOSE: 20 MILLIGRAM(S)
     Route: 048
  3. DILTIAZEM HYDROCHLORIDE [Concomitant]
     Indication: CARDIAC DISORDER
     Dosage: DAILY DOSE: 360 MILLIGRAM(S)
     Route: 048
  4. CARBIDOPA AND LEVODOPA [Concomitant]
     Indication: PARKINSON'S DISEASE
     Dosage: DAILY DOSE: 9 TABLETS, 25-100 MG EACH
     Route: 048
  5. ENALAPRIL [Concomitant]
     Indication: HYPERTENSION
     Dosage: DAILY DOSE: 40 MILLIGRAM(S)
     Route: 048

REACTIONS (3)
  - TESTICULAR MASS [None]
  - ONYCHOMYCOSIS [None]
  - WEIGHT DECREASED [None]
